FAERS Safety Report 16941270 (Version 1)
Quarter: 2019Q4

REPORT INFORMATION
  Report Type: Spontaneous
  Country: TR (occurrence: TR)
  Receive Date: 20191021
  Receipt Date: 20191021
  Transmission Date: 20200122
  Serious: Yes (Other)
  Sender: FDA-Public Use
  Company Number: NVSC2019TR010724

PATIENT

DRUGS (1)
  1. METHOTREXAT ^EBEWE^ 2.5MG TABLETS [Suspect]
     Active Substance: METHOTREXATE
     Indication: PRODUCT USED FOR UNKNOWN INDICATION
     Dosage: UNK
     Route: 065

REACTIONS (3)
  - Product contamination physical [Unknown]
  - Product contamination microbial [Unknown]
  - Intercepted medication error [Unknown]

NARRATIVE: CASE EVENT DATE: 20190926
